FAERS Safety Report 6588803-9 (Version None)
Quarter: 2010Q1

REPORT INFORMATION
  Report Type: 
  Country: None (occurrence: None)
  Receive Date: 20100218
  Receipt Date: 20100210
  Transmission Date: 20100710
  Serious: Yes (Hospitalization, Other)
  Sender: FDA-Public Use
  Company Number: DE-JNJFOC-20090907673

PATIENT
  Age: 75 Year
  Sex: Female

DRUGS (2)
  1. TAVANIC [Suspect]
     Indication: BRONCHITIS
     Route: 048
  2. TAVANIC [Suspect]
     Indication: INFECTION
     Route: 048

REACTIONS (1)
  - TENDON RUPTURE [None]
